FAERS Safety Report 20725554 (Version 1)
Quarter: 2022Q2

REPORT INFORMATION
  Report Type: Spontaneous
  Country: IL (occurrence: IL)
  Receive Date: 20220419
  Receipt Date: 20220419
  Transmission Date: 20220720
  Serious: Yes (Hospitalization)
  Sender: FDA-Public Use
  Company Number: IL-VIWITPHARMA-2022VWTLIT00012

PATIENT
  Age: 75 Year
  Sex: Male

DRUGS (1)
  1. LEVETIRACETAM [Suspect]
     Active Substance: LEVETIRACETAM
     Indication: Epilepsy
     Route: 065

REACTIONS (5)
  - Adverse drug reaction [Recovering/Resolving]
  - Cognitive disorder [Recovering/Resolving]
  - General physical health deterioration [Recovering/Resolving]
  - Traumatic lumbar puncture [Recovering/Resolving]
  - Gait disturbance [Recovering/Resolving]
